FAERS Safety Report 9177317 (Version 1)
Quarter: 2013Q1

REPORT INFORMATION
  Report Type: Spontaneous
  Country: US (occurrence: None)
  Receive Date: 20130320
  Receipt Date: 20130320
  Transmission Date: 20140127
  Serious: No
  Sender: FDA-Public Use
  Company Number: None

PATIENT
  Age: 58 Year
  Sex: Male
  Weight: 95.9 kg

DRUGS (3)
  1. SILDENAFIL [Suspect]
     Indication: DIABETES MELLITUS
     Route: 048
     Dates: start: 20100201, end: 20130313
  2. SILDENAFIL [Suspect]
     Indication: HYPERTENSION
     Route: 048
     Dates: start: 20100201, end: 20130313
  3. SILDENAFIL [Suspect]
     Indication: ERECTILE DYSFUNCTION
     Route: 048
     Dates: start: 20100201, end: 20130313

REACTIONS (1)
  - Treatment failure [None]
